FAERS Safety Report 9767649 (Version 2)
Quarter: 2013Q3

REPORT INFORMATION
  Report Type: Spontaneous
  Country: TR (occurrence: None)
  Receive Date: 20130828
  Receipt Date: 20130916
  Transmission Date: 20140515
  Serious: Yes (Death)
  Sender: FDA-Public Use
  Company Number: KAD201308-001059

PATIENT
  Age: 15 Year
  Sex: Male

DRUGS (2)
  1. AMPHOTERICIN B (AMPHOTERICIN B) [Suspect]
     Indication: ASPERGILLUS INFECTION
  2. CASPOFUNGIN [Suspect]
     Indication: ASPERGILLUS INFECTION

REACTIONS (2)
  - General physical health deterioration [None]
  - Continuous haemodiafiltration [None]
